FAERS Safety Report 10366808 (Version 3)
Quarter: 2014Q3

REPORT INFORMATION
  Report Type: Spontaneous
  Country: JP (occurrence: JP)
  Receive Date: 20140807
  Receipt Date: 20140814
  Transmission Date: 20150326
  Serious: Yes (Hospitalization)
  Sender: FDA-Public Use
  Company Number: JP-ROCHE-1423712

PATIENT
  Age: 91 Year
  Sex: Male

DRUGS (9)
  1. PROTECADIN [Concomitant]
     Active Substance: LAFUTIDINE
     Dosage: DOSAGE UNCERTAIN.
     Route: 065
  2. MUCOSTA [Concomitant]
     Active Substance: REBAMIPIDE
     Dosage: DOSAGE UNCERTAIN.
     Route: 065
  3. EDIROL [Concomitant]
     Active Substance: ELDECALCITOL
     Indication: OSTEOPOROSIS
     Dosage: DOSAGE UNCERTAIN.
     Route: 048
  4. MAGNESIUM OXIDE. [Concomitant]
     Active Substance: MAGNESIUM OXIDE
     Dosage: DOSAGE IS UNCERTAIN.
     Route: 065
  5. JANUVIA [Concomitant]
     Active Substance: SITAGLIPTIN PHOSPHATE
     Indication: DIABETES MELLITUS
     Dosage: DOSAGE IS UNCERTAIN.
     Route: 065
  6. LENDORMIN [Concomitant]
     Active Substance: BROTIZOLAM
     Dosage: DOSAGE IS UNCERTAIN.
     Route: 065
  7. SIGMART [Concomitant]
     Active Substance: NICORANDIL
     Dosage: DOSAGE UNCERTAIN.
     Route: 065
  8. BONVIVA [Suspect]
     Active Substance: IBANDRONATE SODIUM
     Indication: OSTEOPOROSIS
     Route: 042
     Dates: start: 20140106, end: 20140408
  9. ARTZAL [Suspect]
     Active Substance: HYALURONATE SODIUM
     Indication: OSTEOARTHRITIS
     Dosage: DOSAGE IS UNCERTAIN.
     Route: 065
     Dates: start: 20100206

REACTIONS (1)
  - Thrombocytopenia [Not Recovered/Not Resolved]

NARRATIVE: CASE EVENT DATE: 20140519
